FAERS Safety Report 8923583 (Version 2)
Quarter: 2012Q4

REPORT INFORMATION
  Report Type: 
  Country: US (occurrence: US)
  Receive Date: 20121123
  Receipt Date: 20121217
  Transmission Date: 20130627
  Serious: Yes (Other)
  Sender: FDA-Public Use
  Company Number: US-SANOFI-AVENTIS-2012SA084918

PATIENT
  Sex: Male

DRUGS (2)
  1. PLAVIX [Suspect]
     Route: 048
  2. METFORMIN [Suspect]
     Route: 065
     Dates: end: 2002

REACTIONS (2)
  - Brain stem stroke [Unknown]
  - Paralysis [Unknown]
